FAERS Safety Report 18478829 (Version 2)
Quarter: 2021Q4

REPORT INFORMATION
  Report Type: Report from Study
  Country: US (occurrence: US)
  Receive Date: 20201109
  Receipt Date: 20211022
  Transmission Date: 20220303
  Serious: Yes (Hospitalization)
  Sender: FDA-Public Use
  Company Number: US-KAMADA LIMITED-2020US006692

PATIENT

DRUGS (28)
  1. GLASSIA [Suspect]
     Active Substance: .ALPHA.1-PROTEINASE INHIBITOR HUMAN
     Indication: Alpha-1 antitrypsin deficiency
     Dosage: 200 MG/KG, 2/WEEK (950 MG VIAL)
     Route: 042
     Dates: start: 20160527
  2. PREDNISONE [Concomitant]
     Active Substance: PREDNISONE
     Dosage: UNKNOWN
     Route: 065
  3. VANCOMYCIN [Concomitant]
     Active Substance: VANCOMYCIN
     Dosage: UNKNOWN
     Route: 065
  4. ZYPREXA [Concomitant]
     Active Substance: OLANZAPINE
     Dosage: UNKNOWN
     Route: 065
  5. HYDROCHLOROTHIAZIDE\VALSARTAN [Concomitant]
     Active Substance: HYDROCHLOROTHIAZIDE\VALSARTAN
     Dosage: UNKNOWN
     Route: 065
  6. PROLIA [Concomitant]
     Active Substance: DENOSUMAB
     Dosage: UNKNOWN
     Route: 065
  7. DIPHENHYDRAMINE [Concomitant]
     Active Substance: DIPHENHYDRAMINE
     Dosage: UNKNOWN
     Route: 065
  8. EPINEPHRINE [Concomitant]
     Active Substance: EPINEPHRINE
     Dosage: UNKNOWN
     Route: 065
  9. SODIUM CHLORIDE [Concomitant]
     Active Substance: SODIUM CHLORIDE
     Dosage: UNKNOWN
     Route: 065
  10. LMX4 [Concomitant]
     Active Substance: LIDOCAINE
     Dosage: UNKNOWN
     Route: 065
  11. ATORVASTATIN [Concomitant]
     Active Substance: ATORVASTATIN
     Dosage: UNKNOWN
     Route: 065
  12. ESTRADIOL [Concomitant]
     Active Substance: ESTRADIOL
     Dosage: UNKNOWN
     Route: 065
  13. LEVOTHYROXINE [Concomitant]
     Active Substance: LEVOTHYROXINE
     Dosage: UNKNOWN
     Route: 065
  14. PROAIR HFA [Concomitant]
     Active Substance: ALBUTEROL SULFATE
     Dosage: UNKNOWN
     Route: 065
  15. METOPROLOL [Concomitant]
     Active Substance: METOPROLOL
     Dosage: UNKNOWN
     Route: 065
  16. TRELEGY ELLIPTA [Concomitant]
     Active Substance: FLUTICASONE FUROATE\UMECLIDINIUM BROMIDE\VILANTEROL TRIFENATATE
     Dosage: UNKNOWN
     Route: 065
  17. POTASSIUM [Concomitant]
     Active Substance: POTASSIUM
     Dosage: UNKNOWN
     Route: 065
  18. AMLODIPINE [Concomitant]
     Active Substance: AMLODIPINE BESYLATE
     Dosage: UNKNOWN
     Route: 065
  19. AVALIDE [Concomitant]
     Active Substance: HYDROCHLOROTHIAZIDE\IRBESARTAN
     Dosage: UNKNOWN
     Route: 065
  20. MONTELUKAST [Concomitant]
     Active Substance: MONTELUKAST SODIUM
     Dosage: UNKNOWN
     Route: 065
  21. AZITHROMYCIN ANHYDROUS [Concomitant]
     Active Substance: AZITHROMYCIN ANHYDROUS
     Dosage: UNKNOWN
     Route: 065
  22. VITAMIN D3 [Concomitant]
     Active Substance: CHOLECALCIFEROL
     Dosage: UNKNOWN
     Route: 065
  23. MUCINEX [Concomitant]
     Active Substance: GUAIFENESIN
     Dosage: UNKNOWN
     Route: 065
  24. SERTRALINE [Concomitant]
     Active Substance: SERTRALINE HYDROCHLORIDE
     Dosage: UNKNOWN
     Route: 065
  25. OXYGEN [Concomitant]
     Active Substance: OXYGEN
     Dosage: UNKNOWN
     Route: 065
  26. ALBUTEROL\IPRATROPIUM [Concomitant]
     Active Substance: ALBUTEROL\IPRATROPIUM
     Dosage: UNKNOWN
     Route: 065
  27. CALCIUM +D [CALCIUM CARBONATE;COLECALCIFEROL] [Concomitant]
     Dosage: UNKNOWN
     Route: 065
  28. VITAMINS [Concomitant]
     Active Substance: VITAMINS
     Dosage: UNKNOWN
     Route: 065

REACTIONS (2)
  - Lung transplant [Unknown]
  - Product dose omission issue [Unknown]
